FAERS Safety Report 4423465-8 (Version None)
Quarter: 2004Q3

REPORT INFORMATION
  Report Type: 
  Country: None (occurrence: None)
  Receive Date: 20040806
  Receipt Date: 20040727
  Transmission Date: 20050211
  Serious: Yes (Hospitalization)
  Sender: FDA-Public Use
  Company Number: 2004SE04393

PATIENT
  Age: 73 Year
  Sex: Male

DRUGS (2)
  1. METOPROLOL SUCCINATE [Suspect]
     Indication: ESSENTIAL HYPERTENSION
     Dates: start: 20040626, end: 20040703
  2. WARAN [Concomitant]

REACTIONS (6)
  - ACTIVATED PARTIAL THROMBOPLASTIN TIME PROLONGED [None]
  - C-REACTIVE PROTEIN INCREASED [None]
  - LEUKOCYTOSIS [None]
  - PRURITUS [None]
  - PYREXIA [None]
  - RASH [None]
